FAERS Safety Report 22846650 (Version 3)
Quarter: 2025Q2

REPORT INFORMATION
  Report Type: Report from Study
  Country: CA (occurrence: CA)
  Receive Date: 20230822
  Receipt Date: 20250517
  Transmission Date: 20250717
  Serious: Yes (Hospitalization, Other)
  Sender: CELLTRION
  Company Number: CA-CELLTRION INC.-2023CA016341

PATIENT

DRUGS (32)
  1. RITUXIMAB [Suspect]
     Active Substance: RITUXIMAB
     Indication: Rheumatoid arthritis
     Route: 041
  2. RITUXIMAB [Suspect]
     Active Substance: RITUXIMAB
     Route: 041
  3. RITUXIMAB [Suspect]
     Active Substance: RITUXIMAB
     Route: 041
  4. ASPIRIN [Concomitant]
     Active Substance: ASPIRIN
  5. ALLOPURINOL [Concomitant]
     Active Substance: ALLOPURINOL
  6. ALLOPURINOL [Concomitant]
     Active Substance: ALLOPURINOL
  7. FLUTICASONE FUROATE [Concomitant]
     Active Substance: FLUTICASONE FUROATE
  8. BENADRYL [Concomitant]
     Active Substance: DIPHENHYDRAMINE HYDROCHLORIDE
     Indication: Premedication
     Route: 048
  9. BILASTINE [Concomitant]
     Active Substance: BILASTINE
  10. CANDESARTAN [Concomitant]
     Active Substance: CANDESARTAN
  11. DEXILANT [Concomitant]
     Active Substance: DEXLANSOPRAZOLE
  12. DEXILANT [Concomitant]
     Active Substance: DEXLANSOPRAZOLE
  13. EZETIMIBE [Concomitant]
     Active Substance: EZETIMIBE
     Indication: Blood cholesterol increased
  14. GABAPENTIN [Concomitant]
     Active Substance: GABAPENTIN
     Indication: Pain
  15. HYDROXYCHLOROQUINE SULFATE [Concomitant]
     Active Substance: HYDROXYCHLOROQUINE SULFATE
  16. KRILL OIL [Concomitant]
     Active Substance: DIETARY SUPPLEMENT\KRILL OIL
  17. OMALIZUMAB [Concomitant]
     Active Substance: OMALIZUMAB
     Dosage: UNK, 1 EVERY 4 WEEKS
     Route: 065
  18. DOCONEXENT\ICOSAPENT [Concomitant]
     Active Substance: DOCONEXENT\ICOSAPENT
  19. SYNTHROID [Concomitant]
     Active Substance: LEVOTHYROXINE SODIUM
     Route: 065
  20. METHYLPREDNISOLONE SODIUM SUCCINATE [Concomitant]
     Active Substance: METHYLPREDNISOLONE SODIUM SUCCINATE
     Indication: Premedication
     Route: 042
  21. DILTIAZEM [Concomitant]
     Active Substance: DILTIAZEM
  22. DILTIAZEM [Concomitant]
     Active Substance: DILTIAZEM
  23. FOLIC ACID [Concomitant]
     Active Substance: FOLIC ACID
  24. INDAPAMIDE [Concomitant]
     Active Substance: INDAPAMIDE
  25. LEVOTHYROXINE SODIUM [Concomitant]
     Active Substance: LEVOTHYROXINE SODIUM
  26. MACROGOL 4000;PROPYLENE GLYCOL [Concomitant]
     Indication: Dry eye
  27. NITROGLYCERIN [Concomitant]
     Active Substance: NITROGLYCERIN
  28. NORTRIPTYLINE [Concomitant]
     Active Substance: NORTRIPTYLINE
  29. PREGABALIN [Concomitant]
     Active Substance: PREGABALIN
  30. ROSUVASTATIN [Concomitant]
     Active Substance: ROSUVASTATIN
  31. RUPATADINE [Concomitant]
     Active Substance: RUPATADINE
  32. SULFASALAZINE [Concomitant]
     Active Substance: SULFASALAZINE

REACTIONS (21)
  - Muscle spasms [Unknown]
  - Musculoskeletal stiffness [Unknown]
  - Pain in extremity [Unknown]
  - Stress [Unknown]
  - Swelling [Unknown]
  - Thyroid function test abnormal [Unknown]
  - Weight decreased [Unknown]
  - Cauda equina syndrome [Unknown]
  - Dry eye [Unknown]
  - Peripheral swelling [Unknown]
  - Weight increased [Unknown]
  - Arthralgia [Unknown]
  - Blood pressure decreased [Unknown]
  - Hypoaesthesia [Unknown]
  - Angioedema [Unknown]
  - Cough [Unknown]
  - Erythema [Unknown]
  - Localised infection [Unknown]
  - Oropharyngeal pain [Unknown]
  - Rhinorrhoea [Unknown]
  - Intentional product use issue [Unknown]
